FAERS Safety Report 8815062 (Version 2)
Quarter: 2012Q4

REPORT INFORMATION
  Report Type: 
  Country: US (occurrence: US)
  Receive Date: 20120928
  Receipt Date: 20121211
  Transmission Date: 20130627
  Serious: Yes (Death)
  Sender: FDA-Public Use
  Company Number: US-ROCHE-1104230

PATIENT
  Sex: Female

DRUGS (4)
  1. HERCEPTIN [Suspect]
     Indication: OVARIAN CANCER
     Dosage: Loading dose
     Route: 065
     Dates: start: 20020429
  2. HERCEPTIN [Suspect]
     Dosage: Maintenance dose
     Route: 065
  3. TAMOXIFEN [Concomitant]
  4. CARBOPLATIN [Concomitant]

REACTIONS (1)
  - Death [Fatal]
